FAERS Safety Report 15154932 (Version 1)
Quarter: 2018Q3

REPORT INFORMATION
  Report Type: Spontaneous
  Country: US (occurrence: US)
  Receive Date: 20180717
  Receipt Date: 20180717
  Transmission Date: 20181010
  Serious: No
  Sender: FDA-Public Use
  Company Number: US-TARO-2018TAR00330

PATIENT
  Age: 56 Year
  Sex: Female
  Weight: 67.12 kg

DRUGS (3)
  1. SYNTHROID [Concomitant]
     Active Substance: LEVOTHYROXINE SODIUM
  2. DESONIDE CREAM USP 0.05% [Suspect]
     Active Substance: DESONIDE
     Indication: RASH
     Dosage: LIGHT COVERING TO AFFECTED AREAS, 2X/DAY AS NEEDED
     Route: 061
     Dates: start: 20180109
  3. DESONIDE CREAM USP 0.05% [Suspect]
     Active Substance: DESONIDE
     Indication: SKIN IRRITATION

REACTIONS (5)
  - Drug ineffective [Not Recovered/Not Resolved]
  - Product substitution issue [Not Recovered/Not Resolved]
  - Skin irritation [Not Recovered/Not Resolved]
  - Incorrect drug administration duration [Not Recovered/Not Resolved]
  - Rash [Not Recovered/Not Resolved]

NARRATIVE: CASE EVENT DATE: 20180109
